FAERS Safety Report 9309901 (Version 2)
Quarter: 2013Q2

REPORT INFORMATION
  Report Type: Report from Study
  Country: CA (occurrence: CA)
  Receive Date: 20130526
  Receipt Date: 20130530
  Transmission Date: 20140414
  Serious: Yes (Other)
  Sender: FDA-Public Use
  Company Number: CA-US-EMD SERONO, INC.-7212789

PATIENT
  Age: 49 Year
  Sex: Female

DRUGS (6)
  1. REBIF [Suspect]
     Indication: RELAPSING-REMITTING MULTIPLE SCLEROSIS
     Route: 058
     Dates: start: 20120927, end: 20121112
  2. REBIF [Suspect]
     Route: 058
     Dates: start: 20121230
  3. REBIF [Suspect]
     Route: 058
  4. REBIF [Suspect]
     Route: 058
     Dates: start: 20130217
  5. OMEGA 3 [Concomitant]
     Indication: PRODUCT USED FOR UNKNOWN INDICATION
  6. CALCIUM [Concomitant]
     Indication: PRODUCT USED FOR UNKNOWN INDICATION

REACTIONS (2)
  - Pharyngitis streptococcal [Not Recovered/Not Resolved]
  - Nasopharyngitis [Not Recovered/Not Resolved]
